FAERS Safety Report 21469799 (Version 2)
Quarter: 2022Q4

REPORT INFORMATION
  Report Type: Spontaneous
  Country: GT (occurrence: GT)
  Receive Date: 20221018
  Receipt Date: 20221229
  Transmission Date: 20230112
  Serious: Yes (Other)
  Sender: FDA-Public Use
  Company Number: GT-NOVARTISPH-NVSC2022GT231595

PATIENT
  Age: 56 Year
  Sex: Male

DRUGS (1)
  1. SECUKINUMAB [Suspect]
     Active Substance: SECUKINUMAB
     Indication: Ankylosing spondylitis
     Dosage: 150 MG, 1 YEAR, 10 MONTHS APPROXIMATELY
     Route: 065

REACTIONS (2)
  - Hepatomegaly [Unknown]
  - Hepatic enzyme increased [Unknown]
